FAERS Safety Report 10238631 (Version 1)
Quarter: 2014Q2

REPORT INFORMATION
  Report Type: Spontaneous
  Country: DK (occurrence: CA)
  Receive Date: 20140616
  Receipt Date: 20140616
  Transmission Date: 20141212
  Serious: Yes (Hospitalization)
  Sender: FDA-Public Use
  Company Number: CA-FRI-1000068059

PATIENT
  Age: 88 Year
  Sex: Female

DRUGS (5)
  1. MEMANTINE [Suspect]
     Indication: DEMENTIA ALZHEIMER^S TYPE
     Dosage: 10 MG
     Route: 048
     Dates: start: 2012
  2. MEMANTINE [Suspect]
     Indication: COGNITIVE DISORDER
  3. ESCITALOPRAM [Suspect]
     Indication: ANXIETY
     Route: 048
     Dates: start: 2012
  4. DEXTROMETHORPHAN [Suspect]
     Indication: COUGH
     Dates: start: 201403
  5. VITAMIN B 12 [Concomitant]

REACTIONS (5)
  - Fall [Recovered/Resolved]
  - Cough [Recovering/Resolving]
  - Dyspnoea [Not Recovered/Not Resolved]
  - Nightmare [Not Recovered/Not Resolved]
  - Drug interaction [Unknown]
